FAERS Safety Report 17333891 (Version 1)
Quarter: 2020Q1

REPORT INFORMATION
  Report Type: Spontaneous
  Country: GB (occurrence: GB)
  Receive Date: 20200128
  Receipt Date: 20200128
  Transmission Date: 20200409
  Serious: Yes (Other)
  Sender: FDA-Public Use
  Company Number: GB-TEVA-2020-GB-1173644

PATIENT
  Age: 74 Year
  Sex: Female
  Weight: 78 kg

DRUGS (8)
  1. PRAVASTATIN. [Suspect]
     Active Substance: PRAVASTATIN
     Indication: RESPIRATORY TRACT INFECTION
     Dosage: 10 MILLIGRAM
     Route: 048
  2. LEVOTHYROXINE. [Concomitant]
     Active Substance: LEVOTHYROXINE
     Dosage: 50 MICROGRAM
     Dates: start: 20170424
  3. MOVELAT [Concomitant]
     Indication: PAIN
     Dosage: 3 DOSAGE FORM
     Dates: start: 20170525
  4. AMITRIPTYLINE [Concomitant]
     Active Substance: AMITRIPTYLINE
     Indication: PAIN IN EXTREMITY
     Dosage: 10 MILLIGRAM, 1-2 AT NIGHT
     Dates: start: 20170525
  5. ACETYLSALICYLIC ACID [Concomitant]
     Active Substance: ASPIRIN
     Dosage: 75 MILLIGRAM
     Dates: start: 20170424
  6. FELODIPINE. [Concomitant]
     Active Substance: FELODIPINE
     Indication: ANGINA PECTORIS
     Dosage: 2.5 MILLIGRAM
     Dates: start: 20170424
  7. BETAHISTINE [Concomitant]
     Active Substance: BETAHISTINE
     Indication: DIZZINESS
     Dosage: 48 MILLIGRAM
     Dates: start: 20160718
  8. GLYCERYL TRINITRATE [Concomitant]
     Active Substance: NITROGLYCERIN
     Indication: CHEST PAIN
     Dosage: 400 MICROGRAM
     Dates: start: 20170525

REACTIONS (4)
  - Lip swelling [Recovering/Resolving]
  - Swollen tongue [Recovering/Resolving]
  - Oral pruritus [Recovering/Resolving]
  - Malaise [Recovering/Resolving]

NARRATIVE: CASE EVENT DATE: 20170602
